FAERS Safety Report 5571154-9 (Version None)
Quarter: 2007Q4

REPORT INFORMATION
  Report Type: 
  Country: None (occurrence: None)
  Receive Date: 20071221
  Receipt Date: 20061122
  Transmission Date: 20080405
  Serious: No
  Sender: FDA-Public Use
  Company Number: A0628468A

PATIENT
  Age: 81 Year
  Sex: Female

DRUGS (8)
  1. FLONASE [Suspect]
     Dosage: 1SPR TWICE PER DAY
     Route: 045
  2. SODIUM CHLORIDE 0.9% [Concomitant]
  3. TOPROL-XL [Concomitant]
  4. UNKNOWN MEDICATION [Concomitant]
  5. ATACAND [Concomitant]
  6. HYDROCHLOROTHIAZIDE [Concomitant]
  7. CLOPIDOGREL [Concomitant]
  8. TYLENOL [Concomitant]

REACTIONS (1)
  - NASAL NEOPLASM [None]
